FAERS Safety Report 6398001-X (Version None)
Quarter: 2009Q4

REPORT INFORMATION
  Report Type: 
  Country: None (occurrence: None)
  Receive Date: 20091013
  Receipt Date: 20091002
  Transmission Date: 20100525
  Serious: Yes (Other)
  Sender: FDA-Public Use
  Company Number: JP-NOVOPROD-292424

PATIENT
  Age: 43 Year
  Sex: Male
  Weight: 36 kg

DRUGS (5)
  1. NOVOLIN R [Suspect]
     Indication: DIABETES MELLITUS
     Dosage: UNK
     Dates: start: 20090925, end: 20091001
  2. HUMULIN R [Concomitant]
     Dosage: 8 U, QD
     Dates: start: 20090924, end: 20090925
  3. BIOFERMIN [Concomitant]
     Dates: start: 20090923, end: 20091002
  4. SULBACILLIN [Concomitant]
     Dates: start: 20090922, end: 20090928
  5. GASTER                             /00706001/ [Concomitant]
     Dosage: UNK, UNK
     Dates: start: 20090922, end: 20090924

REACTIONS (5)
  - ALANINE AMINOTRANSFERASE INCREASED [None]
  - ASPARTATE AMINOTRANSFERASE INCREASED [None]
  - BLOOD ALKALINE PHOSPHATASE INCREASED [None]
  - BLOOD LACTATE DEHYDROGENASE INCREASED [None]
  - HEPATIC FUNCTION ABNORMAL [None]
